FAERS Safety Report 5718004-5 (Version None)
Quarter: 2008Q2

REPORT INFORMATION
  Report Type: 
  Country: None (occurrence: None)
  Receive Date: 20080425
  Receipt Date: 20080422
  Transmission Date: 20081010
  Serious: Yes (Death)
  Sender: FDA-Public Use
  Company Number: B0516439A

PATIENT
  Age: 75 Year
  Sex: Female

DRUGS (6)
  1. LEUKERAN [Suspect]
     Indication: NON-HODGKIN'S LYMPHOMA
     Dosage: 2MG TWICE PER DAY
     Route: 065
  2. COUGH MEDICATIONS [Concomitant]
  3. LIVER SUPPORTING AGENT [Concomitant]
  4. FAT FREE [Concomitant]
  5. RADIOTHERAPY [Concomitant]
  6. PREDNISOLONE [Concomitant]

REACTIONS (9)
  - ANOREXIA [None]
  - ASTHENIA [None]
  - CONDITION AGGRAVATED [None]
  - CONFUSIONAL STATE [None]
  - CONTRAINDICATION TO MEDICAL TREATMENT [None]
  - COUGH [None]
  - DYSPHAGIA [None]
  - LIVER DISORDER [None]
  - RESPIRATORY DISTRESS [None]
